FAERS Safety Report 25224645 (Version 1)
Quarter: 2025Q2

REPORT INFORMATION
  Report Type: Spontaneous
  Country: CN (occurrence: CN)
  Receive Date: 20250422
  Receipt Date: 20250422
  Transmission Date: 20250717
  Serious: Yes (Other)
  Sender: ALEXION PHARMACEUTICALS
  Company Number: CN-ASTRAZENECA-202504CHN013281CN

PATIENT
  Age: 75 Year
  Weight: 75 kg

DRUGS (1)
  1. DAPAGLIFLOZIN [Suspect]
     Active Substance: DAPAGLIFLOZIN
     Indication: Symptomatic treatment
     Dosage: 10 MILLIGRAM, QD

REACTIONS (2)
  - Urinary tract infection [Recovering/Resolving]
  - Hyperpyrexia [Recovering/Resolving]
